FAERS Safety Report 19458687 (Version 1)
Quarter: 2021Q2

REPORT INFORMATION
  Report Type: Spontaneous
  Country: US (occurrence: US)
  Receive Date: 20210624
  Receipt Date: 20210624
  Transmission Date: 20210717
  Serious: No
  Sender: FDA-Public Use
  Company Number: None

PATIENT
  Age: 76 Year
  Sex: Female

DRUGS (1)
  1. PIQRAY [Suspect]
     Active Substance: ALPELISIB
     Route: 048
     Dates: start: 202105

REACTIONS (4)
  - Nausea [None]
  - Rash [None]
  - Blood glucose decreased [None]
  - Decreased appetite [None]

NARRATIVE: CASE EVENT DATE: 20210506
